FAERS Safety Report 5922569-8 (Version None)
Quarter: 2008Q4

REPORT INFORMATION
  Report Type: 
  Country: None (occurrence: None)
  Receive Date: 20081017
  Receipt Date: 20081007
  Transmission Date: 20090506
  Serious: Yes (Hospitalization, Other)
  Sender: FDA-Public Use
  Company Number: US-ROCHE-587402

PATIENT
  Sex: Female

DRUGS (15)
  1. CAPECITABINE [Suspect]
     Indication: BREAST CANCER
     Dosage: DOSAGE: 6 TABLETS DAILY
     Route: 065
     Dates: start: 20080801
  2. CAPECITABINE [Suspect]
     Dosage: DOSAGE LOWERED, 5 TABLETS DAILY
     Route: 065
     Dates: end: 20080829
  3. SINGULAIR [Concomitant]
  4. MYLANTA [Concomitant]
  5. COMBIVENT [Concomitant]
  6. MIRALAX [Concomitant]
  7. HYDROCODONE BITARTRATE [Concomitant]
  8. DUONEB [Concomitant]
  9. POTASSIUM CHLORIDE [Concomitant]
  10. NEXIUM [Concomitant]
  11. ZOFRAN [Concomitant]
  12. ADVAIR DISKUS 100/50 [Concomitant]
  13. THEOPHYLLINE [Concomitant]
  14. XOPENEX [Concomitant]
  15. CARDIZEM [Concomitant]

REACTIONS (3)
  - ABDOMINAL DISTENSION [None]
  - CHRONIC OBSTRUCTIVE PULMONARY DISEASE [None]
  - SKIN EXFOLIATION [None]
